FAERS Safety Report 20952341 (Version 1)
Quarter: 2022Q2

REPORT INFORMATION
  Report Type: Other
  Country: LB (occurrence: LB)
  Receive Date: 20220613
  Receipt Date: 20220613
  Transmission Date: 20220721
  Serious: Yes (Other)
  Sender: FDA-Public Use
  Company Number: LB-002147023-NVSC2020LB259062

PATIENT
  Age: 68 Year
  Sex: Male
  Weight: 75 kg

DRUGS (4)
  1. LUCENTIS [Suspect]
     Active Substance: RANIBIZUMAB
     Indication: Neovascular age-related macular degeneration
     Route: 050
     Dates: start: 20200616, end: 20200814
  2. LUCENTIS [Suspect]
     Active Substance: RANIBIZUMAB
     Route: 050
     Dates: start: 20200814
  3. ASPIRIN [Concomitant]
     Active Substance: ASPIRIN
  4. OXYGEN [Concomitant]
     Active Substance: OXYGEN

REACTIONS (21)
  - Cushing^s syndrome [Unknown]
  - Bile duct stone [Unknown]
  - Hypoxia [Recovering/Resolving]
  - Blindness unilateral [Not Recovered/Not Resolved]
  - Dry eye [Not Recovered/Not Resolved]
  - Coronavirus infection [Unknown]
  - Foreign body sensation in eyes [Unknown]
  - Lacrimation increased [Unknown]
  - Dyspnoea [Unknown]
  - Oedema peripheral [Unknown]
  - Foreign body in eye [Unknown]
  - Sleep apnoea syndrome [Unknown]
  - Chills [Unknown]
  - Constipation [Recovered/Resolved]
  - Back pain [Unknown]
  - Visual impairment [Not Recovered/Not Resolved]
  - Eye pain [Recovered/Resolved]
  - Colour blindness acquired [Recovered/Resolved]
  - Influenza [Recovered/Resolved]
  - Drug ineffective [Unknown]
  - Groin pain [Unknown]

NARRATIVE: CASE EVENT DATE: 20200822
